FAERS Safety Report 6202954-X (Version None)
Quarter: 2009Q2

REPORT INFORMATION
  Report Type: 
  Country: None (occurrence: None)
  Receive Date: 20090519
  Receipt Date: 20090507
  Transmission Date: 20091009
  Serious: Yes (Death)
  Sender: FDA-Public Use
  Company Number: 2009AP001866

PATIENT
  Age: 88 Year
  Sex: Female

DRUGS (9)
  1. CITALOPRAM HYDROBROMIDE [Suspect]
     Indication: DEPRESSION
     Dosage: 10 MG;PO;QD ; 20 MG ; 30 MG ; 40 MG;QD
     Route: 048
     Dates: start: 20050722
  2. CITALOPRAM HYDROBROMIDE [Suspect]
     Indication: DEPRESSION
     Dosage: 10 MG;PO;QD ; 20 MG ; 30 MG ; 40 MG;QD
     Route: 048
     Dates: start: 20050722
  3. ASPIRIN [Concomitant]
  4. FOLIC ACID [Concomitant]
  5. LATANOPROST [Concomitant]
  6. RAMIPRIL [Concomitant]
  7. TEMAZEPAM [Concomitant]
  8. TOLTERODINE TARTRATE [Concomitant]
  9. TRIMETHOPRIM [Concomitant]

REACTIONS (2)
  - ACCIDENTAL DEATH [None]
  - DRUG TOXICITY [None]
